FAERS Safety Report 12721035 (Version 3)
Quarter: 2017Q1

REPORT INFORMATION
  Report Type: Spontaneous
  Country: US (occurrence: US)
  Receive Date: 20160907
  Receipt Date: 20170109
  Transmission Date: 20170428
  Serious: Yes (Other)
  Sender: FDA-Public Use
  Company Number: US-PFIZER INC-2016417892

PATIENT
  Age: 12 Year
  Sex: Female
  Weight: 32 kg

DRUGS (1)
  1. GENOTROPIN [Suspect]
     Active Substance: SOMATROPIN
     Indication: BODY HEIGHT BELOW NORMAL
     Dosage: 2.2 MG, DAILY
     Route: 058
     Dates: start: 20160812

REACTIONS (3)
  - Concussion [Recovered/Resolved]
  - Increased appetite [Unknown]
  - Injury [Recovered/Resolved]

NARRATIVE: CASE EVENT DATE: 201608
